FAERS Safety Report 7499026-3 (Version None)
Quarter: 2011Q2

REPORT INFORMATION
  Report Type: 
  Country: None (occurrence: None)
  Receive Date: 20110524
  Receipt Date: 20091203
  Transmission Date: 20111010
  Serious: Yes (Other)
  Sender: FDA-Public Use
  Company Number: US-BAYER-200941600NA

PATIENT
  Sex: Male
  Weight: 86 kg

DRUGS (8)
  1. TRASYLOL [Suspect]
     Dosage: 200ML PUMP PRIME DOSE
     Route: 042
     Dates: start: 20061219, end: 20061219
  2. RAMIPRIL [Concomitant]
     Dosage: UNK
     Route: 042
     Dates: start: 20061219, end: 20061219
  3. TRASYLOL [Suspect]
     Indication: CORONARY ARTERY BYPASS
     Dosage: 200 ML BOLUS THEN 50 ML/HOUR
     Route: 042
     Dates: start: 20061219, end: 20061219
  4. PRILOSEC [Concomitant]
     Route: 048
  5. EPINEPHRINE [Concomitant]
     Dosage: UNK
     Route: 042
     Dates: start: 20061219
  6. DECADRON [Concomitant]
     Dosage: UNK
     Route: 042
     Dates: start: 20061219
  7. NIPRIDE [Concomitant]
     Dosage: UNK
     Route: 042
     Dates: start: 20061219
  8. DOBUTREX [Concomitant]
     Dosage: UNK
     Route: 042
     Dates: start: 20061219

REACTIONS (12)
  - INJURY [None]
  - ANHEDONIA [None]
  - RENAL INJURY [None]
  - EMOTIONAL DISTRESS [None]
  - UNEVALUABLE EVENT [None]
  - RENAL IMPAIRMENT [None]
  - MULTI-ORGAN FAILURE [None]
  - FEAR [None]
  - RENAL FAILURE [None]
  - STRESS [None]
  - ANXIETY [None]
  - PAIN [None]
